FAERS Safety Report 24087613 (Version 1)
Quarter: 2024Q3

REPORT INFORMATION
  Report Type: Report from Study
  Country: US (occurrence: US)
  Receive Date: 20240714
  Receipt Date: 20240714
  Transmission Date: 20241017
  Serious: Yes (Other)
  Sender: ABBVIE
  Company Number: US-ABBVIE-5837353

PATIENT
  Age: 57 Year
  Sex: Female

DRUGS (1)
  1. RINVOQ [Suspect]
     Active Substance: UPADACITINIB
     Indication: Rheumatoid arthritis
     Route: 048
     Dates: start: 20220823

REACTIONS (2)
  - Obstruction gastric [Unknown]
  - Gastrointestinal injury [Unknown]

NARRATIVE: CASE EVENT DATE: 20240710
